FAERS Safety Report 5704249-7 (Version None)
Quarter: 2008Q2

REPORT INFORMATION
  Report Type: 
  Country: None (occurrence: None)
  Receive Date: 20080409
  Receipt Date: 20080325
  Transmission Date: 20081010
  Serious: Yes (Hospitalization)
  Sender: FDA-Public Use
  Company Number: 100#08#2008-01882

PATIENT
  Age: 75 Year
  Sex: Female

DRUGS (10)
  1. LITHIUM CARBONATE [Suspect]
     Indication: DRUG USE FOR UNKNOWN INDICATION
     Dosage: 350 MG, THREE TIMES DAILY;
  2. NIMESULIDE (NIMESULIDE) [Suspect]
     Indication: PAIN
     Dosage: 100 MG ONCE;
  3. VENLAFAXINE HCL [Concomitant]
  4. TRAZODONE HCL [Concomitant]
  5. DULOXETINE (DULOXETINE) [Concomitant]
  6. BISOPROLOL (BISOPROLOL) [Concomitant]
  7. SIMVASTATIN [Concomitant]
  8. METFORMIN HCL [Concomitant]
  9. ALPRAZOLAM [Concomitant]
  10. ZOPICLONE (ZOPICLONE) [Concomitant]

REACTIONS (9)
  - APHASIA [None]
  - CONFUSIONAL STATE [None]
  - DRUG INTERACTION [None]
  - FALL [None]
  - MUSCLE RIGIDITY [None]
  - MUSCULAR WEAKNESS [None]
  - NERVOUS SYSTEM DISORDER [None]
  - THERAPEUTIC AGENT TOXICITY [None]
  - TREMOR [None]
